FAERS Safety Report 12180983 (Version 2)
Quarter: 2016Q1

REPORT INFORMATION
  Report Type: Spontaneous
  Country: ID (occurrence: ID)
  Receive Date: 20160315
  Receipt Date: 20160328
  Transmission Date: 20160526
  Serious: Yes (Death, Hospitalization, Other)
  Sender: FDA-Public Use
  Company Number: ID-BAYER-2016-049809

PATIENT
  Sex: Female

DRUGS (1)
  1. STIVARGA [Suspect]
     Active Substance: REGORAFENIB
     Indication: COLORECTAL CANCER METASTATIC
     Dosage: UNK
     Route: 048
     Dates: end: 201601

REACTIONS (3)
  - Cardiac arrest [Fatal]
  - Tumour marker increased [None]
  - Cerebrovascular accident [None]

NARRATIVE: CASE EVENT DATE: 2016
